FAERS Safety Report 13611350 (Version 1)
Quarter: 2017Q2

REPORT INFORMATION
  Report Type: Spontaneous
  Country: KR (occurrence: KR)
  Receive Date: 20170605
  Receipt Date: 20170605
  Transmission Date: 20170830
  Serious: Yes (Other)
  Sender: FDA-Public Use
  Company Number: KR-009507513-1503KOR000130

PATIENT
  Age: 46 Year
  Sex: Male
  Weight: 70 kg

DRUGS (6)
  1. PLATOSIN [Concomitant]
     Active Substance: CISPLATIN
     Indication: CHEMOTHERAPY
     Dosage: 186 MG, ONCE, STRENGTH: 0.1% 50 ML
     Route: 042
     Dates: start: 20150209, end: 20150209
  2. MANNITOL. [Concomitant]
     Active Substance: MANNITOL
     Indication: PROPHYLAXIS
     Dosage: 250 ML, ONCE, STRENGTH: 15% 250 ML
     Route: 042
     Dates: start: 20150209, end: 20150209
  3. CHLORPHENIRAMINE MALEATE. [Concomitant]
     Active Substance: CHLORPHENIRAMINE MALEATE
     Indication: PROPHYLAXIS
     Dosage: 4 MG, ONCE
     Route: 042
     Dates: start: 20150209, end: 20150209
  4. EMEND (FOSAPREPITANT DIMEGLUMINE) [Suspect]
     Active Substance: FOSAPREPITANT DIMEGLUMINE
     Indication: PROPHYLAXIS OF NAUSEA AND VOMITING
     Dosage: 150 MG, ONCE
     Route: 042
     Dates: start: 20150209, end: 20150209
  5. ALOXI [Concomitant]
     Active Substance: PALONOSETRON HYDROCHLORIDE
     Indication: PREMEDICATION
     Dosage: 0.25 MG, ONCE
     Route: 042
     Dates: start: 20150209, end: 20150209
  6. DEXAMETHASONE SODIUM PHOSPHATE. [Concomitant]
     Active Substance: DEXAMETHASONE SODIUM PHOSPHATE
     Indication: PREMEDICATION
     Dosage: 10 MG, ONCE, STRENGTH: 5 MG/ML
     Route: 042
     Dates: start: 20150209, end: 20150209

REACTIONS (4)
  - Decreased appetite [Recovering/Resolving]
  - Nausea [Recovered/Resolved]
  - Facial paralysis [Recovering/Resolving]
  - Dizziness [Recovering/Resolving]

NARRATIVE: CASE EVENT DATE: 20150210
